FAERS Safety Report 9421379 (Version 2)
Quarter: 2013Q3

REPORT INFORMATION
  Report Type: Spontaneous
  Country: JP (occurrence: JP)
  Receive Date: 20130725
  Receipt Date: 20130923
  Transmission Date: 20140515
  Serious: Yes (Hospitalization, Other)
  Sender: FDA-Public Use
  Company Number: JP-RB-056145-13

PATIENT
  Age: 46 Year
  Sex: Female

DRUGS (5)
  1. LEPETAN INJECTION [Suspect]
     Indication: PRODUCT USED FOR UNKNOWN INDICATION
     Dosage: 1.8 MG (ALMOST EVERY DAY)
     Route: 030
     Dates: start: 20120925, end: 20130118
  2. LEPETAN INJECTION [Suspect]
     Dosage: 0.3-0.6 MG (ALMOST EVERY DAY)
     Route: 030
     Dates: start: 20130507, end: 20130527
  3. LEPETAN INJECTION [Suspect]
     Dosage: 0.3-0.6 MG (ALMOST EVERY DAY)
     Route: 030
     Dates: start: 20130618, end: 20130625
  4. PENTAZOCINE [Concomitant]
     Indication: DYSMENORRHOEA
     Route: 030
     Dates: start: 20070126, end: 20110924
  5. QUAZEPAM [Concomitant]
     Indication: PRODUCT USED FOR UNKNOWN INDICATION
     Route: 065
     Dates: start: 20120925

REACTIONS (2)
  - Drug dependence [Recovered/Resolved]
  - Suicide attempt [Unknown]
